FAERS Safety Report 4714489-1 (Version None)
Quarter: 2005Q3

REPORT INFORMATION
  Report Type: 
  Country: None (occurrence: None)
  Receive Date: 20050714
  Receipt Date: 20050708
  Transmission Date: 20060218
  Serious: Yes (Hospitalization)
  Sender: FDA-Public Use
  Company Number: PHBS2005JP09755

PATIENT
  Age: 55 Year
  Sex: Male

DRUGS (5)
  1. FASTIC [Suspect]
     Indication: DIABETES MELLITUS
     Dosage: 270 MG/DAY
     Route: 048
     Dates: start: 20050405, end: 20050427
  2. ASPIRIN [Concomitant]
     Indication: MYOCARDIAL INFARCTION
     Dosage: 200 MG/DAY
     Dates: start: 20050324
  3. LIPITOR [Suspect]
     Indication: HYPERLIPIDAEMIA
     Dosage: 10 MG/DAY
     Route: 048
     Dates: start: 20050324, end: 20050427
  4. PANALDINE [Suspect]
     Indication: MYOCARDIAL INFARCTION
     Dosage: 200 MG/DAY
     Route: 048
     Dates: start: 20050324, end: 20050425
  5. NU-LOTAN [Concomitant]
     Dates: start: 20050324

REACTIONS (1)
  - HEPATIC FUNCTION ABNORMAL [None]
